FAERS Safety Report 6931577-X (Version None)
Quarter: 2010Q3

REPORT INFORMATION
  Report Type: 
  Country: None (occurrence: None)
  Receive Date: 20100819
  Receipt Date: 20100805
  Transmission Date: 20110219
  Serious: Yes (Other)
  Sender: FDA-Public Use
  Company Number: US-ELI_LILLY_AND_COMPANY-US201008002931

PATIENT
  Sex: Female

DRUGS (11)
  1. FORTEO [Suspect]
     Indication: OSTEOPOROSIS
     Dosage: 20 UG, DAILY (1/D)
  2. SYNTHROID [Concomitant]
  3. NEXIUM [Concomitant]
     Dosage: 40 MG, DAILY (1/D)
  4. SPIRIVA [Concomitant]
     Dosage: UNK, DAILY (1/D)
  5. FORADIL [Concomitant]
     Dosage: UNK, 2/D
  6. VITAMIN TAB [Concomitant]
  7. AMBIEN [Concomitant]
     Dosage: UNK, AS NEEDED
  8. BONIVA [Concomitant]
  9. FOSAMAX [Concomitant]
  10. OXYGEN [Concomitant]
     Dosage: UNK, DAILY (1/D)
  11. CALCIUM [Concomitant]

REACTIONS (6)
  - ARTHRALGIA [None]
  - ARTHROPATHY [None]
  - DYSPNOEA [None]
  - LUNG NEOPLASM MALIGNANT [None]
  - PAIN [None]
  - PULMONARY FIBROSIS [None]
